FAERS Safety Report 12644202 (Version 1)
Quarter: 2016Q3

REPORT INFORMATION
  Report Type: Spontaneous
  Country: US (occurrence: US)
  Receive Date: 20160811
  Receipt Date: 20160811
  Transmission Date: 20161109
  Serious: No
  Sender: FDA-Public Use
  Company Number: US-NEPHRON PHARMACEUTICALS CORPORATION-1056193

PATIENT
  Age: 82 Year
  Sex: Female
  Weight: 61.36 kg

DRUGS (2)
  1. ALBUTEROL SULFATE INHALATION SOLUTION, 0.083% [Suspect]
     Active Substance: ALBUTEROL SULFATE
     Indication: ASTHMA
     Route: 055
     Dates: start: 20160805
  2. ALBUTEROL HFA [Suspect]
     Active Substance: ALBUTEROL SULFATE
     Route: 055
     Dates: end: 20160805

REACTIONS (3)
  - Abnormal faeces [Not Recovered/Not Resolved]
  - Constipation [Not Recovered/Not Resolved]
  - Oral candidiasis [Not Recovered/Not Resolved]

NARRATIVE: CASE EVENT DATE: 20160805
